FAERS Safety Report 4976198-3 (Version None)
Quarter: 2006Q2

REPORT INFORMATION
  Report Type: 
  Country: None (occurrence: None)
  Receive Date: 20060419
  Receipt Date: 20060317
  Transmission Date: 20061013
  Serious: Yes (Disabling, Other)
  Sender: FDA-Public Use
  Company Number: 2006UW04612

PATIENT
  Age: 21549 Day
  Sex: Female
  Weight: 60 kg

DRUGS (2)
  1. TAMOXIFEN CITRATE [Suspect]
     Indication: BREAST CANCER IN SITU
     Route: 048
     Dates: start: 20010501, end: 20060315
  2. LEXAPRO [Concomitant]
     Indication: DEPRESSION
     Route: 048
     Dates: start: 20030227

REACTIONS (2)
  - UVEITIS [None]
  - VISION BLURRED [None]
